FAERS Safety Report 20042668 (Version 1)
Quarter: 2021Q4

REPORT INFORMATION
  Report Type: Spontaneous
  Country: US (occurrence: US)
  Receive Date: 20211108
  Receipt Date: 20211108
  Transmission Date: 20220303
  Serious: Yes (Other)
  Sender: FDA-Public Use
  Company Number: US-GLAXOSMITHKLINE-US2021GSK229609

PATIENT
  Sex: Female

DRUGS (2)
  1. RANITIDINE [Suspect]
     Active Substance: RANITIDINE
     Indication: Pulmonary fibrosis
     Dosage: 150 MG, QD
     Route: 065
     Dates: start: 201201, end: 201912
  2. RANITIDINE [Suspect]
     Active Substance: RANITIDINE
     Indication: Pulmonary fibrosis
     Dosage: 150 MG, QD
     Route: 065
     Dates: start: 201201, end: 201912

REACTIONS (1)
  - Breast cancer [Unknown]
